FAERS Safety Report 17478989 (Version 1)
Quarter: 2020Q1

REPORT INFORMATION
  Report Type: Spontaneous
  Country: US (occurrence: US)
  Receive Date: 20200228
  Receipt Date: 20200228
  Transmission Date: 20200409
  Serious: Yes (Other)
  Sender: FDA-Public Use
  Company Number: US-PFIZER INC-2020085185

PATIENT
  Age: 31 Year
  Sex: Male

DRUGS (1)
  1. DILANTIN [Suspect]
     Active Substance: PHENYTOIN
     Dosage: 100 MG, UNK  (QUANTITY FOR 90 DAYS: 270)

REACTIONS (3)
  - Accident [Unknown]
  - Impaired driving ability [Unknown]
  - Impaired work ability [Unknown]

NARRATIVE: CASE EVENT DATE: 2019
